FAERS Safety Report 19119117 (Version 1)
Quarter: 2021Q2

REPORT INFORMATION
  Report Type: Report from Study
  Country: CA (occurrence: CA)
  Receive Date: 20210411
  Receipt Date: 20210411
  Transmission Date: 20210717
  Serious: Yes (Other)
  Sender: FDA-Public Use
  Company Number: CA-UCBSA-2021015706

PATIENT
  Sex: Female

DRUGS (2)
  1. BRIVARACETAM [Suspect]
     Active Substance: BRIVARACETAM
     Indication: PARTIAL SEIZURES
     Dosage: DOSE: 100MG PER DAY
  2. BRIVARACETAM [Suspect]
     Active Substance: BRIVARACETAM
     Dosage: DOSE: 150MG PER DAY

REACTIONS (2)
  - Incorrect dose administered [Unknown]
  - Seizure [Not Recovered/Not Resolved]
